FAERS Safety Report 7957520-2 (Version None)
Quarter: 2011Q4

REPORT INFORMATION
  Report Type: 
  Country: None (occurrence: None)
  Receive Date: 20111205
  Receipt Date: 20111129
  Transmission Date: 20120403
  Serious: Yes (Other)
  Sender: FDA-Public Use
  Company Number: US-GLAXOSMITHKLINE-A0955762A

PATIENT
  Age: 89 Year
  Sex: Female

DRUGS (2)
  1. ADVAIR DISKUS 100/50 [Suspect]
     Indication: ASTHMA
     Dosage: 2PUFF TWICE PER DAY
     Route: 055
     Dates: start: 20111001, end: 20111101
  2. ANTIBIOTICS [Concomitant]

REACTIONS (2)
  - OVERDOSE [None]
  - VISUAL ACUITY REDUCED [None]
